FAERS Safety Report 9416709 (Version 1)
Quarter: 2013Q3

REPORT INFORMATION
  Report Type: Spontaneous
  Country: GB (occurrence: GB)
  Receive Date: 20130724
  Receipt Date: 20130724
  Transmission Date: 20140515
  Serious: Yes (Other)
  Sender: FDA-Public Use
  Company Number: GB-PFIZER INC-2013212772

PATIENT
  Age: 49 Year
  Sex: Female

DRUGS (1)
  1. TAZOCIN [Suspect]
     Dosage: UNK

REACTIONS (1)
  - Pneumonia klebsiella [Unknown]
